FAERS Safety Report 7756711-3 (Version None)
Quarter: 2011Q3

REPORT INFORMATION
  Report Type: 
  Country: None (occurrence: None)
  Receive Date: 20110916
  Receipt Date: 20110906
  Transmission Date: 20111222
  Serious: Yes (Other)
  Sender: FDA-Public Use
  Company Number: FR-UCBSA-040846

PATIENT
  Sex: Male
  Weight: 2.97 kg

DRUGS (2)
  1. DEPAKENE [Concomitant]
     Route: 064
  2. KEPPRA [Suspect]
     Indication: EPILEPSY
     Dosage: 1 UNIT DAILY
     Route: 064
     Dates: start: 20091201

REACTIONS (2)
  - MATERNAL EXPOSURE DURING PREGNANCY [None]
  - PREMATURE BABY [None]
